FAERS Safety Report 24282080 (Version 1)
Quarter: 2024Q3

REPORT INFORMATION
  Report Type: Spontaneous
  Country: US (occurrence: None)
  Receive Date: 20240902
  Receipt Date: 20240902
  Transmission Date: 20241017
  Serious: Yes (Disabling, Other)
  Sender: Public
  Company Number: None

PATIENT
  Age: 46 Year
  Sex: Female
  Weight: 84.15 kg

DRUGS (11)
  1. KETAMINE [Suspect]
     Active Substance: KETAMINE
     Indication: Pain
     Route: 042
     Dates: end: 20200324
  2. GABAPENTIN [Concomitant]
  3. LEXAPRO [Concomitant]
  4. LISINOPRIL [Concomitant]
  5. SYNTHROID [Concomitant]
     Active Substance: LEVOTHYROXINE SODIUM
  6. Vitamin D [Concomitant]
  7. L-TYROSINE [Concomitant]
  8. MAGNESIUM CITRATE [Concomitant]
  9. Sublingual [Concomitant]
  10. NM-6603 [Concomitant]
     Active Substance: NM-6603
  11. VITAMIN B COMPLEX [Concomitant]
     Active Substance: CYANOCOBALAMIN\DEXPANTHENOL\NIACINAMIDE\PYRIDOXINE HYDROCHLORIDE\RIBOFLAVIN 5^-PHOSPHATE SODIUM\THIA

REACTIONS (2)
  - Hallucination [None]
  - Refusal of treatment by patient [None]

NARRATIVE: CASE EVENT DATE: 20220622
